FAERS Safety Report 24060755 (Version 1)
Quarter: 2024Q3

REPORT INFORMATION
  Report Type: Spontaneous
  Country: AR (occurrence: AR)
  Receive Date: 20240708
  Receipt Date: 20240708
  Transmission Date: 20241016
  Serious: Yes (Other)
  Sender: PFIZER
  Company Number: AR-PFIZER INC-202400085292

PATIENT
  Age: 79 Year
  Sex: Female

DRUGS (1)
  1. IBRANCE [Suspect]
     Active Substance: PALBOCICLIB
     Indication: Breast cancer metastatic
     Dosage: 125 MG, CYCLIC (DAILY, SCHEME 3X1)
     Dates: start: 20190306, end: 20231023

REACTIONS (5)
  - Platelet count decreased [Unknown]
  - Decreased immune responsiveness [Not Recovered/Not Resolved]
  - Anaemia [Unknown]
  - Agitation [Unknown]
  - Ulcer [Not Recovered/Not Resolved]
